FAERS Safety Report 14607406 (Version 1)
Quarter: 2018Q1

REPORT INFORMATION
  Report Type: Spontaneous
  Country: US (occurrence: US)
  Receive Date: 20180307
  Receipt Date: 20180307
  Transmission Date: 20180509
  Serious: Yes (Other)
  Sender: FDA-Public Use
  Company Number: US-BAYER-2018-039761

PATIENT
  Age: 67 Year
  Sex: Male

DRUGS (1)
  1. BAYER ASPIRIN [Suspect]
     Active Substance: ASPIRIN
     Dosage: 4 DF, QD (2 IN THE MORNING AND 2 IN THE NIGHT)

REACTIONS (3)
  - Peripheral swelling [Unknown]
  - Thrombosis [Unknown]
  - Incorrect dose administered [None]
